FAERS Safety Report 9846534 (Version 1)
Quarter: 2014Q1

REPORT INFORMATION
  Report Type: Spontaneous
  Country: US (occurrence: US)
  Receive Date: 20140127
  Receipt Date: 20140127
  Transmission Date: 20141002
  Serious: No
  Sender: FDA-Public Use
  Company Number: US-BAYER-2014-013333

PATIENT
  Age: 47 Year
  Sex: Male
  Weight: 81.63 kg

DRUGS (1)
  1. ALEVE CAPLET [Suspect]
     Indication: INFLAMMATION
     Dosage: 2 DF, PRN
     Route: 048
     Dates: start: 201309

REACTIONS (2)
  - Extra dose administered [None]
  - Off label use [None]
